FAERS Safety Report 4673979-0 (Version None)
Quarter: 2005Q2

REPORT INFORMATION
  Report Type: 
  Country: None (occurrence: None)
  Receive Date: 20050523
  Receipt Date: 20040531
  Transmission Date: 20051028
  Serious: No
  Sender: FDA-Public Use
  Company Number: 10055788-NA01-0

PATIENT
  Age: 57 Year
  Sex: Female

DRUGS (2)
  1. AHB2324 - HARTMANN'S SOLUTION (LACTATED RINGER'S) [Suspect]
     Indication: MAGNESIUM DEFICIENCY
     Dosage: FREQUENCY - CONTNUOUS
     Dates: start: 20040528
  2. 2 VIALS 2.47 GRAMS OF MAGNESIUM SULPHATE DBL [Concomitant]

REACTIONS (2)
  - HYPERHIDROSIS [None]
  - INJECTION SITE WARMTH [None]
